FAERS Safety Report 10041779 (Version 2)
Quarter: 2014Q2

REPORT INFORMATION
  Report Type: Spontaneous
  Country: US (occurrence: US)
  Receive Date: 20140327
  Receipt Date: 20140415
  Transmission Date: 20141212
  Serious: Yes (Hospitalization)
  Sender: FDA-Public Use
  Company Number: US-JNJFOC-20140312726

PATIENT
  Age: 49 Year
  Sex: Female

DRUGS (4)
  1. XARELTO [Suspect]
     Indication: THROMBOSIS PROPHYLAXIS
     Route: 048
     Dates: start: 20130806, end: 20140318
  2. VITAMINE E [Concomitant]
     Indication: HOT FLUSH
     Dosage: FOR MORE THAN 3 YEARS
     Route: 065
  3. MULTIVITAMINS FOR MATURE ADULTS [Concomitant]
     Indication: HOT FLUSH
     Dosage: FOR MORE THAN 3 YEARS
     Route: 065
  4. FOLIC ACID [Concomitant]
     Indication: HOT FLUSH
     Dosage: FOR MORE THAN 3 YEARS
     Route: 065

REACTIONS (1)
  - Deep vein thrombosis [Recovered/Resolved]
